FAERS Safety Report 4831236-3 (Version None)
Quarter: 2005Q4

REPORT INFORMATION
  Report Type: 
  Country: None (occurrence: None)
  Receive Date: 20051116
  Receipt Date: 20051104
  Transmission Date: 20060501
  Serious: Yes (Other)
  Sender: FDA-Public Use
  Company Number: FABR-11305

PATIENT
  Age: 34 Year
  Sex: Female
  Weight: 110 kg

DRUGS (6)
  1. FABRAZYME [Suspect]
     Indication: FABRY'S DISEASE
     Dosage: 110 MG Q2WKS IV
     Route: 042
     Dates: start: 20031115
  2. LISINOPRIL [Concomitant]
  3. TRAZODONE [Concomitant]
  4. CARBAMAZEPINE [Concomitant]
  5. OMEPRAZOLE [Concomitant]
  6. ASPIRIN [Concomitant]

REACTIONS (1)
  - BREAST CANCER FEMALE [None]
